FAERS Safety Report 5801563-1 (Version None)
Quarter: 2008Q3

REPORT INFORMATION
  Report Type: 
  Country: None (occurrence: None)
  Receive Date: 20080707
  Receipt Date: 20080707
  Transmission Date: 20090109
  Serious: Yes (Other)
  Sender: FDA-Public Use
  Company Number: ORTUS27409

PATIENT
  Age: 33 Year
  Sex: Female

DRUGS (2)
  1. MONISTAT [Suspect]
     Route: 067
     Dates: start: 19950912, end: 19950912
  2. MONISTAT [Suspect]
     Indication: FUNGAL INFECTION
     Route: 067
     Dates: start: 19950912, end: 19950912

REACTIONS (3)
  - ABORTION SPONTANEOUS [None]
  - DRUG EXPOSURE DURING PREGNANCY [None]
  - VAGINAL HAEMORRHAGE [None]
